FAERS Safety Report 9845257 (Version 2)
Quarter: 2014Q1

REPORT INFORMATION
  Report Type: Spontaneous
  Country: DE (occurrence: DE)
  Receive Date: 20140127
  Receipt Date: 20140127
  Transmission Date: 20141002
  Serious: Yes (Hospitalization, Other)
  Sender: FDA-Public Use
  Company Number: FR-ASTELLAS-2014EU000321

PATIENT
  Age: 58 Year
  Sex: Female

DRUGS (13)
  1. PROGRAF [Suspect]
     Indication: SYSTEMIC LUPUS ERYTHEMATOSUS
     Dosage: 5.5 MG, BID
     Route: 048
  2. PROGRAF [Suspect]
     Indication: RENAL TRANSPLANT
  3. METFORMIN [Concomitant]
     Dosage: 500 MG, UNKNOWN/D
     Route: 065
  4. DECORTIN [Concomitant]
     Dosage: 7.5 MG, UNKNOWN/D
     Route: 065
  5. RAMIPRIL [Concomitant]
     Dosage: 10 MG, UNKNOWN/D
     Route: 065
  6. CANDESARTAN [Concomitant]
     Dosage: 8 MG, UNKNOWN/D
     Route: 065
  7. DOXAZOSIN [Concomitant]
     Dosage: 4 MG, UNKNOWN/D
     Route: 065
  8. ALDACTONE                          /00006201/ [Concomitant]
     Dosage: 50 MG, UNKNOWN/D
     Route: 065
  9. SIMVASTATIN [Concomitant]
     Dosage: 20 MG, UNKNOWN/D
     Route: 065
  10. PANTOZOL                           /01263204/ [Concomitant]
     Dosage: 40 UNK, UNKNOWN/D
     Route: 065
  11. FUROSEMID                          /00032601/ [Concomitant]
     Dosage: 40 UNK, UNKNOWN/D
     Route: 065
  12. COTRIM [Concomitant]
     Dosage: 480 UNK, UNKNOWN/D
     Route: 065
  13. TAZOBAC [Concomitant]
     Dosage: 4.5 G, UNKNOWN/D
     Route: 042

REACTIONS (2)
  - Pneumonitis [Not Recovered/Not Resolved]
  - General physical health deterioration [Unknown]
